FAERS Safety Report 23783463 (Version 4)
Quarter: 2024Q3

REPORT INFORMATION
  Report Type: Report from Study
  Country: US (occurrence: US)
  Receive Date: 20240425
  Receipt Date: 20240912
  Transmission Date: 20241016
  Serious: Yes (Hospitalization)
  Sender: JOHNSON AND JOHNSON
  Company Number: US-JNJFOC-20230808080

PATIENT
  Age: 64 Year
  Sex: Female
  Weight: 74 kg

DRUGS (9)
  1. DARZALEX [Suspect]
     Active Substance: DARATUMUMAB
     Indication: Plasma cell myeloma
     Dosage: FIRST REGIMEN
     Route: 058
     Dates: start: 20230503, end: 20230509
  2. DARZALEX [Suspect]
     Active Substance: DARATUMUMAB
     Dosage: SECOND REGIMEN
     Route: 058
     Dates: start: 20230523
  3. ELRANATAMAB [Suspect]
     Active Substance: ELRANATAMAB
     Indication: Plasma cell myeloma
     Dosage: FIRST REGIMEN
     Route: 058
     Dates: start: 20230417, end: 20230417
  4. ELRANATAMAB [Suspect]
     Active Substance: ELRANATAMAB
     Dosage: SECOND REGIMEN
     Route: 058
     Dates: start: 20230421, end: 20230421
  5. ELRANATAMAB [Suspect]
     Active Substance: ELRANATAMAB
     Dosage: THIRD REGIMEN
     Route: 058
     Dates: start: 20230503, end: 20230509
  6. ELRANATAMAB [Suspect]
     Active Substance: ELRANATAMAB
     Dosage: FOURTH REGIMEN
     Route: 058
     Dates: start: 20230523
  7. AMOXICILLIN\CLAVULANIC ACID [Concomitant]
     Active Substance: AMOXICILLIN\CLAVULANIC ACID
     Indication: Bronchitis
     Route: 048
     Dates: start: 20230516, end: 20230522
  8. AMOXICILLIN\CLAVULANIC ACID [Concomitant]
     Active Substance: AMOXICILLIN\CLAVULANIC ACID
     Indication: Cystitis
     Route: 048
     Dates: start: 20230607, end: 20230616
  9. PRISTINAMYCIN [Concomitant]
     Active Substance: PRISTINAMYCIN
     Indication: Bronchitis
     Route: 048
     Dates: start: 20230530, end: 20230605

REACTIONS (1)
  - Pneumonia haemophilus [Recovered/Resolved]

NARRATIVE: CASE EVENT DATE: 20230612
